FAERS Safety Report 20811096 (Version 1)
Quarter: 2022Q2

REPORT INFORMATION
  Report Type: Spontaneous
  Country: US (occurrence: None)
  Receive Date: 20220510
  Receipt Date: 20220510
  Transmission Date: 20220720
  Serious: Yes (Other)
  Sender: FDA-Public Use
  Company Number: 2022A174719

PATIENT
  Age: 26958 Day
  Sex: Female
  Weight: 63 kg

DRUGS (59)
  1. NEXIUM [Suspect]
     Active Substance: ESOMEPRAZOLE MAGNESIUM
     Indication: Gastrooesophageal reflux disease
     Route: 048
     Dates: start: 2014
  2. NEXIUM [Suspect]
     Active Substance: ESOMEPRAZOLE MAGNESIUM
     Indication: Dyspepsia
     Route: 048
     Dates: start: 2014
  3. OMEPRAZOLE [Suspect]
     Active Substance: OMEPRAZOLE
     Indication: Gastrooesophageal reflux disease
     Dosage: GENERIC
     Route: 065
     Dates: start: 2016, end: 2018
  4. OMEPRAZOLE [Suspect]
     Active Substance: OMEPRAZOLE
     Indication: Dyspepsia
     Dosage: GENERIC
     Route: 065
     Dates: start: 2016, end: 2018
  5. PRILOSEC OTC [Suspect]
     Active Substance: OMEPRAZOLE MAGNESIUM
     Indication: Gastrooesophageal reflux disease
     Route: 048
     Dates: start: 2011, end: 2018
  6. PRILOSEC OTC [Suspect]
     Active Substance: OMEPRAZOLE MAGNESIUM
     Indication: Dyspepsia
     Route: 048
     Dates: start: 2011, end: 2018
  7. PROTONIX [Suspect]
     Active Substance: PANTOPRAZOLE SODIUM
     Indication: Gastrooesophageal reflux disease
     Route: 065
     Dates: start: 2020
  8. PROTONIX [Suspect]
     Active Substance: PANTOPRAZOLE SODIUM
     Indication: Dyspepsia
     Route: 065
     Dates: start: 2020
  9. PREVACID 24 HR [Suspect]
     Active Substance: LANSOPRAZOLE
     Indication: Gastrooesophageal reflux disease
     Route: 065
     Dates: end: 2010
  10. PREVACID 24 HR [Suspect]
     Active Substance: LANSOPRAZOLE
     Indication: Dyspepsia
     Route: 065
     Dates: end: 2010
  11. AZITHROMYCIN [Concomitant]
     Active Substance: AZITHROMYCIN
     Indication: Nasopharyngitis
  12. LOSARTAN [Concomitant]
     Active Substance: LOSARTAN
     Indication: Hypertension
  13. ALPRAZOLAM [Concomitant]
     Active Substance: ALPRAZOLAM
     Indication: Anxiety
  14. ALPRAZOLAM [Concomitant]
     Active Substance: ALPRAZOLAM
     Indication: Nervousness
  15. CARBIDOPA [Concomitant]
     Active Substance: CARBIDOPA
     Indication: Restless legs syndrome
  16. PRISTIQ EXTENDED-RELEASE [Concomitant]
     Active Substance: DESVENLAFAXINE SUCCINATE
     Indication: Antidepressant drug level
  17. ADVIL [Concomitant]
     Active Substance: IBUPROFEN
     Indication: Toothache
  18. ZANTAC [Concomitant]
     Active Substance: RANITIDINE HYDROCHLORIDE
  19. PREDNISONE [Concomitant]
     Active Substance: PREDNISONE
  20. TRAMADOL [Concomitant]
     Active Substance: TRAMADOL
  21. BENTYL [Concomitant]
     Active Substance: DICYCLOMINE HYDROCHLORIDE
  22. NICOTINE [Concomitant]
     Active Substance: NICOTINE
  23. NIACIN [Concomitant]
     Active Substance: NIACIN
  24. SINGULAIR [Concomitant]
     Active Substance: MONTELUKAST SODIUM
  25. CITALOPRAM HYDROBROMIDE [Concomitant]
     Active Substance: CITALOPRAM HYDROBROMIDE
  26. FUROSEMIDE [Concomitant]
     Active Substance: FUROSEMIDE
  27. VITAMIN D [Concomitant]
     Active Substance: VITAMIN D NOS
  28. ESCIN/LEVOTHYROXINE [Concomitant]
  29. CARBIDOPA\LEVODOPA [Concomitant]
     Active Substance: CARBIDOPA\LEVODOPA
  30. PRAVASTATIN SODIUM [Concomitant]
     Active Substance: PRAVASTATIN SODIUM
  31. NORCO [Concomitant]
     Active Substance: ACETAMINOPHEN\HYDROCODONE BITARTRATE
  32. PHENTERMINE [Concomitant]
     Active Substance: PHENTERMINE
  33. ACULAR [Concomitant]
     Active Substance: KETOROLAC TROMETHAMINE
  34. LISINOPRIL AND HYDROCHLOROTHIAZIDE [Concomitant]
     Active Substance: HYDROCHLOROTHIAZIDE\LISINOPRIL
  35. LEVOCETIRIZINE [Concomitant]
     Active Substance: LEVOCETIRIZINE
  36. FLUTICASONE [Concomitant]
     Active Substance: FLUTICASONE
  37. SUPREP BOWEL PREP [Concomitant]
     Active Substance: MAGNESIUM SULFATE\POTASSIUM SULFATE\SODIUM SULFATE
  38. DESVENLAFAXINE [Concomitant]
     Active Substance: DESVENLAFAXINE
  39. SUCRALFATE [Concomitant]
     Active Substance: SUCRALFATE
  40. BETAMETHASONE [Concomitant]
     Active Substance: BETAMETHASONE
  41. PNEUMOVAX 23 [Concomitant]
     Active Substance: PNEUMOCOCCAL VACCINE, POLYVALENT 23
  42. POLYETHYLENE GLYCOL [Concomitant]
     Active Substance: POLYETHYLENE GLYCOL
  43. MIRALAX [Concomitant]
     Active Substance: POLYETHYLENE GLYCOL 3350
  44. PROBIOTICS NOS [Concomitant]
     Active Substance: PROBIOTICS NOS
  45. CYANOCOBALAMIN [Concomitant]
     Active Substance: CYANOCOBALAMIN
  46. DICLOFENAC SODIUM [Concomitant]
     Active Substance: DICLOFENAC SODIUM
  47. METHOCARBAMOL [Concomitant]
     Active Substance: METHOCARBAMOL
  48. ACETAMINOPHEN\HYDROCODONE BITARTRATE [Concomitant]
     Active Substance: ACETAMINOPHEN\HYDROCODONE BITARTRATE
  49. NAPROXEN [Concomitant]
     Active Substance: NAPROXEN
  50. CLINDAMYCIN [Concomitant]
     Active Substance: CLINDAMYCIN
  51. CHLORHEXIDINE [Concomitant]
     Active Substance: CHLORHEXIDINE
  52. TRIAMCINOLONE [Concomitant]
     Active Substance: TRIAMCINOLONE
  53. POTASSIUM CHLORIDE [Concomitant]
     Active Substance: POTASSIUM CHLORIDE
  54. HYDROCHLOROTHIAZIDE [Concomitant]
     Active Substance: HYDROCHLOROTHIAZIDE
  55. AMOX/ CLAV [Concomitant]
  56. RESTASIS [Concomitant]
     Active Substance: CYCLOSPORINE
  57. METHYLPREDNISOLONE [Concomitant]
     Active Substance: METHYLPREDNISOLONE
  58. PREGABALIN [Concomitant]
     Active Substance: PREGABALIN
  59. LOMOTIL [Concomitant]
     Active Substance: ATROPINE SULFATE\DIPHENOXYLATE HYDROCHLORIDE

REACTIONS (1)
  - Chronic kidney disease [Not Recovered/Not Resolved]

NARRATIVE: CASE EVENT DATE: 20200115
